FAERS Safety Report 4457495-7 (Version None)
Quarter: 2004Q3

REPORT INFORMATION
  Report Type: 
  Country: None (occurrence: None)
  Receive Date: 20040922
  Receipt Date: 20040915
  Transmission Date: 20050211
  Serious: No
  Sender: FDA-Public Use
  Company Number: 163-20785-04090162

PATIENT
  Age: 48 Year
  Sex: Male

DRUGS (3)
  1. THALOMID [Suspect]
     Indication: AMYLOIDOSIS
  2. MELPHALAN (MELPHALAN) [Suspect]
     Indication: AMYLOIDOSIS
  3. DEXAMETHASONE [Suspect]
     Indication: AMYLOIDOSIS

REACTIONS (6)
  - APNOEA [None]
  - BLOOD PH DECREASED [None]
  - CARDIAC ARREST [None]
  - ELECTROMECHANICAL DISSOCIATION [None]
  - SNORING [None]
  - SUDDEN CARDIAC DEATH [None]
